FAERS Safety Report 13621252 (Version 2)
Quarter: 2018Q1

REPORT INFORMATION
  Report Type: Spontaneous
  Country: US (occurrence: US)
  Receive Date: 20170607
  Receipt Date: 20180328
  Transmission Date: 20180508
  Serious: No
  Sender: FDA-Public Use
  Company Number: US-PFIZER INC-2017241947

PATIENT
  Age: 46 Year
  Sex: Female
  Weight: 88.45 kg

DRUGS (10)
  1. TAPAZOLE [Suspect]
     Active Substance: METHIMAZOLE
     Dosage: 5MG OR LESS, UNK
     Route: 048
  2. DIPHENHYDRAMINE. [Concomitant]
     Active Substance: DIPHENHYDRAMINE
     Dosage: 50MG, DAILY (25MG, TWO AT NIGHT)
     Dates: start: 201502
  3. METOPROLOL. [Concomitant]
     Active Substance: METOPROLOL
     Indication: TACHYCARDIA
     Dosage: 25 MG, 2X/DAY
     Dates: start: 201306
  4. HYDROXYZINE [Concomitant]
     Active Substance: HYDROXYZINE HYDROCHLORIDE
     Indication: ANTIALLERGIC THERAPY
     Dosage: 25MG IN THE AM 75MG AT NIGHT
     Dates: start: 201302, end: 201502
  5. METHIMAZOLE. [Suspect]
     Active Substance: METHIMAZOLE
     Indication: HYPERTHYROIDISM
     Dosage: UNK
  6. TAPAZOLE [Suspect]
     Active Substance: METHIMAZOLE
     Dosage: 2.5 MG, WEEKLY (AT REMISSION)
     Route: 048
  7. PROPRANOLOL [Concomitant]
     Active Substance: PROPRANOLOL HYDROCHLORIDE
     Dosage: UNK
     Dates: start: 201108, end: 201108
  8. TAPAZOLE [Suspect]
     Active Substance: METHIMAZOLE
     Indication: HYPERTHYROIDISM
     Dosage: 10 MG, 2X/DAY
     Route: 048
     Dates: start: 201108
  9. ATENOLOL. [Concomitant]
     Active Substance: ATENOLOL
     Dosage: UNK
  10. DIPHENHYDRAMINE. [Concomitant]
     Active Substance: DIPHENHYDRAMINE
     Indication: ANTIALLERGIC THERAPY
     Dosage: 50 MG, DAILY (2 CAPSULES EVERY NIGHT)
     Dates: start: 2003, end: 201302

REACTIONS (4)
  - Hypothyroidism [Unknown]
  - Intentional product use issue [Unknown]
  - Drug ineffective [Recovered/Resolved]
  - Dysgeusia [Unknown]

NARRATIVE: CASE EVENT DATE: 2011
